FAERS Safety Report 9529372 (Version 2)
Quarter: 2013Q3

REPORT INFORMATION
  Report Type: Spontaneous
  Country: None (occurrence: GB)
  Receive Date: 20130917
  Receipt Date: 20130917
  Transmission Date: 20140515
  Serious: Yes (Life-Threatening)
  Sender: FDA-Public Use
  Company Number: GB-TEVA-180514ISR

PATIENT
  Age: 23 Year
  Sex: Female

DRUGS (3)
  1. LAMOTRIGINE [Suspect]
     Route: 048
  2. CITALOPRAM [Suspect]
     Route: 048
  3. CHLORPHENAMINE [Suspect]
     Route: 048

REACTIONS (10)
  - Intentional overdose [Unknown]
  - Depressed level of consciousness [Unknown]
  - Agitation [Recovered/Resolved]
  - Metabolic acidosis [Recovered/Resolved]
  - Nystagmus [Recovered/Resolved]
  - Electrocardiogram QRS complex prolonged [Recovered/Resolved]
  - Electrocardiogram QT prolonged [Recovered/Resolved]
  - Sinus tachycardia [Recovered/Resolved]
  - Tremor [Recovered/Resolved]
  - Vomiting [Recovered/Resolved]
